FAERS Safety Report 4709410-6 (Version None)
Quarter: 2005Q3

REPORT INFORMATION
  Report Type: 
  Country: None (occurrence: None)
  Receive Date: 20050708
  Receipt Date: 20050704
  Transmission Date: 20060218
  Serious: Yes (Hospitalization)
  Sender: FDA-Public Use
  Company Number: PHRM2005FR02048

PATIENT
  Age: 78 Year
  Sex: Female
  Weight: 50 kg

DRUGS (4)
  1. COTAREG [Suspect]
     Route: 048
  2. SELOKEN [Suspect]
     Route: 048
  3. EUPRESSYL [Suspect]
     Indication: HYPERTENSION
     Route: 048
     Dates: start: 20050511
  4. KARDEGIC [Concomitant]
     Route: 048

REACTIONS (2)
  - DRUG INTERACTION [None]
  - HYPOTENSION [None]
